FAERS Safety Report 6060638-5 (Version None)
Quarter: 2009Q1

REPORT INFORMATION
  Report Type: 
  Country: None (occurrence: None)
  Receive Date: 20090130
  Receipt Date: 20090130
  Transmission Date: 20090719
  Serious: Yes (Hospitalization)
  Sender: FDA-Public Use
  Company Number: None

PATIENT
  Age: 73 Year
  Sex: Female
  Weight: 58.9676 kg

DRUGS (1)
  1. VIVACTIL [Suspect]
     Indication: DEPRESSION
     Dosage: PO
     Route: 048
     Dates: start: 20080912, end: 20080912

REACTIONS (5)
  - BLOOD PRESSURE ORTHOSTATIC DECREASED [None]
  - ELECTROCARDIOGRAM CHANGE [None]
  - SYNCOPE [None]
  - TREMOR [None]
  - TROPONIN INCREASED [None]
